FAERS Safety Report 17005662 (Version 2)
Quarter: 2019Q4

REPORT INFORMATION
  Report Type: Spontaneous
  Country: SI (occurrence: SI)
  Receive Date: 20191107
  Receipt Date: 20191205
  Transmission Date: 20200122
  Serious: Yes (Other)
  Sender: FDA-Public Use
  Company Number: SI-BAYER-2019-198248

PATIENT
  Age: 41 Year
  Sex: Female

DRUGS (2)
  1. ULIPRISTAL ACETATE [Concomitant]
     Active Substance: ULIPRISTAL ACETATE
  2. LEVONORGESTREL IUS [UNKNOWN] [Suspect]
     Active Substance: LEVONORGESTREL
     Indication: UTERINE LEIOMYOMA
     Dosage: UNK
     Route: 015

REACTIONS (9)
  - Pelvic pain [None]
  - Off label use [None]
  - Uterine enlargement [None]
  - Uterine leiomyoma [None]
  - Therapeutic product ineffective for unapproved indication [None]
  - Anaemia [Recovered/Resolved]
  - Genital haemorrhage [Not Recovered/Not Resolved]
  - Device dislocation [None]
  - Device use issue [None]
